FAERS Safety Report 4881719-5 (Version None)
Quarter: 2006Q1

REPORT INFORMATION
  Report Type: 
  Country: None (occurrence: None)
  Receive Date: 20060116
  Receipt Date: 20060109
  Transmission Date: 20060701
  Serious: Yes (Hospitalization)
  Sender: FDA-Public Use
  Company Number: AU-ROCHE-431215

PATIENT
  Age: 63 Year
  Sex: Male
  Weight: 70 kg

DRUGS (4)
  1. NAPROSYN [Suspect]
     Route: 048
     Dates: start: 20041029, end: 20041102
  2. QUINATE [Suspect]
     Route: 048
     Dates: end: 20041102
  3. OVESTIN [Concomitant]
     Route: 067
  4. ASPIRIN [Concomitant]
     Route: 048

REACTIONS (6)
  - ANOREXIA [None]
  - EOSINOPHILIA [None]
  - HEPATIC FUNCTION ABNORMAL [None]
  - PRURITUS [None]
  - RASH ERYTHEMATOUS [None]
  - RASH MACULO-PAPULAR [None]
